FAERS Safety Report 22163444 (Version 1)
Quarter: 2023Q2

REPORT INFORMATION
  Report Type: Spontaneous
  Country: JP (occurrence: JP)
  Receive Date: 20230401
  Receipt Date: 20230401
  Transmission Date: 20230722
  Serious: Yes (Life-Threatening, Hospitalization, Other)
  Sender: FDA-Public Use
  Company Number: JP-MLMSERVICE-20230316-4166785-1

PATIENT
  Age: 5 Decade
  Sex: Female

DRUGS (3)
  1. ETOPOSIDE [Suspect]
     Active Substance: ETOPOSIDE
     Indication: Chemotherapy
  2. METHOTREXATE [Suspect]
     Active Substance: METHOTREXATE
     Indication: Chemotherapy
  3. DACTINOMYCIN [Suspect]
     Active Substance: DACTINOMYCIN
     Indication: Chemotherapy

REACTIONS (9)
  - Pneumonia [Recovering/Resolving]
  - Stomatitis [Unknown]
  - Leukopenia [Unknown]
  - Renal impairment [Unknown]
  - Thrombocytopenia [Unknown]
  - Hepatic enzyme increased [Unknown]
  - Febrile neutropenia [Unknown]
  - Septic shock [Unknown]
  - Stress cardiomyopathy [Recovered/Resolved]
